FAERS Safety Report 21689487 (Version 2)
Quarter: 2023Q1

REPORT INFORMATION
  Report Type: Spontaneous
  Country: JP (occurrence: JP)
  Receive Date: 20221206
  Receipt Date: 20230207
  Transmission Date: 20230417
  Serious: Yes (Other)
  Sender: FDA-Public Use
  Company Number: JP-TAKEDA-2022TJP078052

PATIENT
  Age: 9 Decade

DRUGS (1)
  1. ADCETRIS [Suspect]
     Active Substance: BRENTUXIMAB VEDOTIN
     Indication: Peripheral T-cell lymphoma unspecified refractory
     Dosage: 1.8 MILLIGRAM/KILOGRAM, Q3WEEKS
     Route: 042
     Dates: start: 20220623

REACTIONS (1)
  - Peripheral T-cell lymphoma unspecified refractory [Unknown]
